FAERS Safety Report 7385236-2 (Version None)
Quarter: 2011Q1

REPORT INFORMATION
  Report Type: 
  Country: None (occurrence: None)
  Receive Date: 20110330
  Receipt Date: 20110328
  Transmission Date: 20110831
  Serious: Yes (Hospitalization)
  Sender: FDA-Public Use
  Company Number: US-MERCK-1103USA00347

PATIENT
  Age: 63 Year
  Sex: Male
  Weight: 66 kg

DRUGS (11)
  1. CLOPIDOGREL [Concomitant]
     Route: 048
  2. HYDRALAZINE [Concomitant]
     Route: 048
  3. OMEPRAZOLE [Concomitant]
     Route: 048
  4. RANOLAZINE HYDROCHLORIDE [Suspect]
     Route: 048
  5. METOPROLOL [Concomitant]
     Route: 048
  6. ISOSORBIDE MONONITRATE [Concomitant]
     Route: 048
  7. ZOCOR [Suspect]
     Route: 048
  8. ZOCOR [Suspect]
     Route: 048
  9. METOPROLOL [Concomitant]
     Route: 048
  10. FUROSEMIDE [Concomitant]
     Route: 048
  11. NITROGLYCERIN [Concomitant]
     Route: 048

REACTIONS (2)
  - DRUG INTERACTION [None]
  - RHABDOMYOLYSIS [None]
